FAERS Safety Report 10985063 (Version 1)
Quarter: 2015Q1

REPORT INFORMATION
  Report Type: Spontaneous
  Country: US (occurrence: None)
  Receive Date: 20150313
  Receipt Date: 20150313
  Transmission Date: 20150721
  Serious: Yes (Other)
  Sender: FDA-Public Use
  Company Number: 1384796

PATIENT
  Age: 26 Year
  Sex: Female

DRUGS (7)
  1. SINGULAIR (MONTELUKAST SODIUM) [Concomitant]
  2. PULMICORT TURBUHALER [Concomitant]
     Active Substance: BUDESONIDE
  3. XOLAIR [Suspect]
     Active Substance: OMALIZUMAB
     Indication: PRODUCT USED FOR UNKNOWN INDICATION
     Dosage: ON XOLAIR FOR ABOUT A YEAR (1 IN 2 WK), UNKNOWN
  4. ZETONNA (CICLESONIDE) [Concomitant]
  5. ACIPHEX [Concomitant]
     Active Substance: RABEPRAZOLE SODIUM
  6. ZYRTEC [Concomitant]
     Active Substance: CETIRIZINE HYDROCHLORIDE
  7. ALIGNE (BIFIDOBACTERIUM) [Concomitant]

REACTIONS (3)
  - Dyspnoea [None]
  - Urticaria [None]
  - Medication error [None]
